FAERS Safety Report 5683155-0 (Version None)
Quarter: 2008Q1

REPORT INFORMATION
  Report Type: 
  Country: None (occurrence: None)
  Receive Date: 20080327
  Receipt Date: 20080320
  Transmission Date: 20080703
  Serious: Yes (Other)
  Sender: FDA-Public Use
  Company Number: US-GENENTECH-253942

PATIENT
  Age: 63 Year
  Sex: Female

DRUGS (15)
  1. RITUXIMAB [Suspect]
     Indication: B-CELL LYMPHOMA
     Dosage: 375 MG/M2, UNK
  2. FLUDARABINE [Concomitant]
     Indication: B-CELL LYMPHOMA
     Dosage: 25 MG/M2, UNK
  3. NOVANTRONE [Concomitant]
     Indication: B-CELL LYMPHOMA
     Dosage: 10 MG/M2, UNK
  4. DEXAMETHASONE [Concomitant]
     Indication: B-CELL LYMPHOMA
     Dosage: 20 MG, X5
     Route: 048
  5. BACTRIM DS [Concomitant]
     Indication: DRUG USE FOR UNKNOWN INDICATION
     Dosage: UNK, UNK
     Route: 048
  6. VALTREX [Concomitant]
     Indication: DRUG USE FOR UNKNOWN INDICATION
     Dosage: 500 MG, UNK
     Route: 048
  7. METOPROLOL TARTRATE [Concomitant]
     Indication: DRUG USE FOR UNKNOWN INDICATION
  8. DICYCLOMINE [Concomitant]
     Indication: DRUG USE FOR UNKNOWN INDICATION
  9. PHENYTOIN [Concomitant]
     Indication: DRUG USE FOR UNKNOWN INDICATION
  10. METOCLOPRAMIDE [Concomitant]
     Indication: DRUG USE FOR UNKNOWN INDICATION
  11. CYCLOBENZAPRINE HCL [Concomitant]
     Indication: DRUG USE FOR UNKNOWN INDICATION
  12. MECLIZINE [Concomitant]
     Indication: DRUG USE FOR UNKNOWN INDICATION
  13. SULINDAC [Concomitant]
     Indication: DRUG USE FOR UNKNOWN INDICATION
  14. PREVACID [Concomitant]
     Indication: DRUG USE FOR UNKNOWN INDICATION
  15. VYTORIN [Concomitant]
     Indication: DRUG USE FOR UNKNOWN INDICATION

REACTIONS (3)
  - CHEST PAIN [None]
  - DYSPNOEA [None]
  - SYNCOPE [None]
